FAERS Safety Report 9522507 (Version 1)
Quarter: 2013Q1

REPORT INFORMATION
  Report Type: Spontaneous
  Country: US (occurrence: None)
  Receive Date: 20130305
  Receipt Date: 20130305
  Transmission Date: 20140127
  Serious: Yes (Hospitalization)
  Sender: FDA-Public Use
  Company Number: 163-21880-12033223

PATIENT
  Age: 65 Year
  Sex: Female
  Weight: 56.7 kg

DRUGS (1)
  1. REVLIMID (LENALIDOMIDE) (15 MILLIGRAM, CAPSULES) [Suspect]
     Indication: PELVIC NEOPLASM
     Dosage: 15 MG, 1 IN 1 D, PO
     Route: 048
     Dates: start: 201106

REACTIONS (3)
  - Nausea [None]
  - Vomiting [None]
  - Pain [None]
